FAERS Safety Report 25869173 (Version 1)
Quarter: 2025Q4

REPORT INFORMATION
  Report Type: Spontaneous
  Country: AU (occurrence: AU)
  Receive Date: 20251001
  Receipt Date: 20251001
  Transmission Date: 20260117
  Serious: Yes (Other)
  Sender: CSL BEHRING
  Company Number: AU-BEH-2025220024

PATIENT
  Age: 47 Year
  Sex: Female

DRUGS (11)
  1. HUMAN IMMUNOGLOBULIN G [Suspect]
     Active Substance: HUMAN IMMUNOGLOBULIN G
     Indication: Thrombosis with thrombocytopenia syndrome
     Route: 042
  2. BORTEZOMIB [Suspect]
     Active Substance: BORTEZOMIB
     Indication: Monoclonal gammopathy
     Route: 065
  3. BORTEZOMIB [Suspect]
     Active Substance: BORTEZOMIB
     Indication: Thrombosis with thrombocytopenia syndrome
  4. TOLODODEKIN ALFA [Suspect]
     Active Substance: TOLODODEKIN ALFA
     Indication: Monoclonal gammopathy
     Route: 065
  5. TOLODODEKIN ALFA [Suspect]
     Active Substance: TOLODODEKIN ALFA
     Indication: Thrombosis with thrombocytopenia syndrome
  6. DEXAMETHASONE SODIUM PHOSPHATE [Suspect]
     Active Substance: DEXAMETHASONE SODIUM PHOSPHATE
     Indication: Monoclonal gammopathy
     Route: 065
  7. DEXAMETHASONE SODIUM PHOSPHATE [Suspect]
     Active Substance: DEXAMETHASONE SODIUM PHOSPHATE
     Indication: Thrombosis with thrombocytopenia syndrome
  8. RITUXIMAB [Suspect]
     Active Substance: RITUXIMAB
     Indication: Unknown immunisation status
     Route: 065
  9. XARELTO [Suspect]
     Active Substance: RIVAROXABAN
     Indication: Pulmonary embolism
     Dosage: DOSE FORM: 082
     Route: 065
  10. UNSPECIFIED INGREDIENT [Concomitant]
     Active Substance: UNSPECIFIED INGREDIENT
  11. DABIGATRAN ETEXILATE [Concomitant]
     Active Substance: DABIGATRAN ETEXILATE

REACTIONS (10)
  - Cerebral venous sinus thrombosis [Unknown]
  - Deep vein thrombosis [Unknown]
  - Drug ineffective for unapproved indication [Unknown]
  - Monoclonal gammopathy [Unknown]
  - Plasma cell myeloma [Unknown]
  - Pulmonary embolism [Unknown]
  - Renal vein thrombosis [Unknown]
  - Thrombocytopenia [Not Recovered/Not Resolved]
  - Thrombosis [Unknown]
  - Off label use [Unknown]
